APPROVED DRUG PRODUCT: EPIVIR
Active Ingredient: LAMIVUDINE
Strength: 10MG/ML
Dosage Form/Route: SOLUTION;ORAL
Application: N020596 | Product #001 | TE Code: AA
Applicant: VIIV HEALTHCARE CO
Approved: Nov 17, 1995 | RLD: Yes | RS: Yes | Type: RX